FAERS Safety Report 5308519-6 (Version None)
Quarter: 2007Q2

REPORT INFORMATION
  Report Type: 
  Country: None (occurrence: None)
  Receive Date: 20070424
  Receipt Date: 20070424
  Transmission Date: 20071010
  Serious: Yes (Hospitalization)
  Sender: FDA-Public Use
  Company Number: None

PATIENT
  Sex: Male
  Weight: 59 kg

DRUGS (5)
  1. FLUOROURACIL [Suspect]
     Dosage: 4450 MG
     Dates: start: 20060907
  2. BEVACIZUMAB (RHUMAB VEGF) [Suspect]
     Dosage: 250 MG
     Dates: start: 20060907
  3. LEUCOVORIN CALCIUM [Suspect]
     Dosage: 635 MG
     Dates: start: 20060907
  4. ELOXATIN [Suspect]
  5. MEGACE [Concomitant]

REACTIONS (4)
  - DEEP VEIN THROMBOSIS [None]
  - GROIN PAIN [None]
  - NEUTROPENIA [None]
  - RENAL FAILURE [None]
